FAERS Safety Report 9056586 (Version 2)
Quarter: 2013Q1

REPORT INFORMATION
  Report Type: Spontaneous
  Country: US (occurrence: US)
  Receive Date: 20130204
  Receipt Date: 20130313
  Transmission Date: 20140127
  Serious: Yes (Other)
  Sender: FDA-Public Use
  Company Number: US-FRI-1000042219

PATIENT
  Age: 26 Year
  Sex: Female
  Weight: 63.5 kg

DRUGS (6)
  1. VIIBRYD [Suspect]
     Indication: DEPRESSION
     Dosage: 10 MG
     Route: 048
     Dates: start: 20121029, end: 20121104
  2. VIIBRYD [Suspect]
     Indication: ANXIETY
     Dosage: 20 MG
     Route: 048
     Dates: start: 20121105, end: 20121111
  3. VIIBRYD [Suspect]
     Indication: DEPRESSION
     Dosage: 40 MG
     Route: 048
     Dates: start: 20121112, end: 20130117
  4. VIIBRYD [Suspect]
     Indication: ANXIETY
  5. VIIBRYD [Suspect]
     Indication: DEPRESSION
     Dosage: 20 MG
     Route: 048
     Dates: start: 20130118, end: 20130121
  6. VIIBRYD [Suspect]
     Indication: ANXIETY

REACTIONS (1)
  - Petit mal epilepsy [Recovered/Resolved]
